FAERS Safety Report 7178077 (Version 4)
Quarter: 2014Q2

REPORT INFORMATION
  Report Type: Spontaneous
  Country: US (occurrence: US)
  Receive Date: 20091116
  Receipt Date: 20140622
  Transmission Date: 20141212
  Serious: Yes (Hospitalization)
  Sender: FDA-Public Use
  Company Number: US-ALEXION-A200900938

PATIENT
  Age: 28 Year
  Sex: Female

DRUGS (3)
  1. SOLIRIS [Suspect]
     Indication: PAROXYSMAL NOCTURNAL HAEMOGLOBINURIA
     Dosage: 600 MG Q WEEK
     Route: 042
     Dates: start: 20080507, end: 20080528
  2. SOLIRIS [Suspect]
     Dosage: 900 MG, UNK
     Route: 042
     Dates: start: 20080604
  3. PREDNISONE [Concomitant]
     Dosage: 40 MG, QD
     Route: 047

REACTIONS (6)
  - Deep vein thrombosis [Recovered/Resolved]
  - Chromaturia [Unknown]
  - Hypokalaemia [Unknown]
  - Haematuria [Unknown]
  - Haemolysis [Unknown]
  - Pain in extremity [Unknown]
